FAERS Safety Report 24422287 (Version 1)
Quarter: 2024Q4

REPORT INFORMATION
  Report Type: Spontaneous
  Country: US (occurrence: US)
  Receive Date: 20241010
  Receipt Date: 20241010
  Transmission Date: 20250115
  Serious: No
  Sender: GLAXOSMITHKLINE
  Company Number: US-GSK-US2024122154

PATIENT
  Sex: Female

DRUGS (1)
  1. DOSTARLIMAB [Suspect]
     Active Substance: DOSTARLIMAB
     Indication: Endometrial cancer stage IV
     Dosage: UNK, 4 CYCLES OF 500 MG DOSTARLIMAB Q3W FOLLOWED BY 1000MG Q6W

REACTIONS (1)
  - Off label use [Unknown]
